FAERS Safety Report 6727383-1 (Version None)
Quarter: 2010Q2

REPORT INFORMATION
  Report Type: 
  Country: None (occurrence: None)
  Receive Date: 20100512
  Receipt Date: 20100317
  Transmission Date: 20101027
  Serious: No
  Sender: FDA-Public Use
  Company Number: 1000012545

PATIENT
  Age: 51 Year
  Sex: Female

DRUGS (3)
  1. SAVELLA [Suspect]
     Indication: FIBROMYALGIA
     Dosage: 12.5 MG (12.5 MG, 1 IN 1 D) ORAL; 25 MG (12.5MG, 2 IN 1 D) ORAL
     Route: 048
     Dates: start: 20100312, end: 20100312
  2. SAVELLA [Suspect]
     Indication: FIBROMYALGIA
     Dosage: 12.5 MG (12.5 MG, 1 IN 1 D) ORAL; 25 MG (12.5MG, 2 IN 1 D) ORAL
     Route: 048
     Dates: start: 20100313, end: 20100314
  3. SAVELLA [Suspect]
     Indication: FIBROMYALGIA
     Dosage: 50 MG (25 MG, 2 IN 1 D) ORAL
     Route: 048
     Dates: start: 20100315, end: 20100316

REACTIONS (4)
  - DIARRHOEA [None]
  - HOT FLUSH [None]
  - NAUSEA [None]
  - PARAESTHESIA [None]
